FAERS Safety Report 14799201 (Version 3)
Quarter: 2018Q2

REPORT INFORMATION
  Report Type: Spontaneous
  Country: US (occurrence: US)
  Receive Date: 20180424
  Receipt Date: 20180504
  Transmission Date: 20180711
  Serious: Yes (Death)
  Sender: FDA-Public Use
  Company Number: US-LEXICON PHARMACEUTICALS, INC-18-1606-00455

PATIENT
  Sex: Female

DRUGS (15)
  1. METHIMAZOLE. [Concomitant]
     Active Substance: METHIMAZOLE
  2. MEGESTROL ACETATE. [Concomitant]
     Active Substance: MEGESTROL ACETATE
  3. CELECOXIB. [Concomitant]
     Active Substance: CELECOXIB
  4. QUESTRAN [Concomitant]
     Active Substance: CHOLESTYRAMINE
  5. OCTREOTIDE. [Concomitant]
     Active Substance: OCTREOTIDE
     Route: 058
  6. LOMOTIL [Concomitant]
     Active Substance: ATROPINE SULFATE\DIPHENOXYLATE HYDROCHLORIDE
  7. IBANDRONATE SODIUM. [Concomitant]
     Active Substance: IBANDRONATE SODIUM
  8. TRAVATAN [Concomitant]
     Active Substance: TRAVOPROST
  9. SANDOSTATIN LAR DEPOT [Concomitant]
     Active Substance: OCTREOTIDE ACETATE
     Route: 030
  10. TELOTRISTAT ETHYL [Suspect]
     Active Substance: TELOTRISTAT ETHYL
     Indication: CARCINOID SYNDROME
     Route: 048
     Dates: start: 20170810
  11. MEGESTROL [Concomitant]
     Active Substance: MEGESTROL
  12. METOPROLOL TARTRATE. [Concomitant]
     Active Substance: METOPROLOL TARTRATE
  13. FUROSEMIDE. [Concomitant]
     Active Substance: FUROSEMIDE
  14. RESTASIS [Concomitant]
     Active Substance: CYCLOSPORINE
  15. ZOFRAN [Concomitant]
     Active Substance: ONDANSETRON HYDROCHLORIDE

REACTIONS (1)
  - Disease progression [Fatal]
